FAERS Safety Report 5183830-0 (Version None)
Quarter: 2006Q4

REPORT INFORMATION
  Report Type: 
  Country: None (occurrence: None)
  Receive Date: 20061220
  Receipt Date: 20060911
  Transmission Date: 20070319
  Serious: Yes (Other)
  Sender: FDA-Public Use
  Company Number: FR-GLAXOSMITHKLINE-B0437784A

PATIENT
  Age: 43 Year
  Sex: Female

DRUGS (3)
  1. ZELITREX [Suspect]
     Dosage: 500MG SEE DOSAGE TEXT
     Route: 048
     Dates: start: 20060908, end: 20060910
  2. ZOVIRAX [Suspect]
     Route: 061
     Dates: start: 20060908
  3. GYNO PEVARYL [Suspect]
     Dosage: 150MG THREE TIMES PER DAY
     Route: 050
     Dates: start: 20060908

REACTIONS (8)
  - ABDOMINAL PAIN [None]
  - DIARRHOEA [None]
  - DIZZINESS [None]
  - GASTROENTERITIS [None]
  - HEADACHE [None]
  - MUSCLE SPASMS [None]
  - NAUSEA [None]
  - PYREXIA [None]
